FAERS Safety Report 5070020-5 (Version None)
Quarter: 2006Q3

REPORT INFORMATION
  Report Type: 
  Country: None (occurrence: None)
  Receive Date: 20060731
  Receipt Date: 20060726
  Transmission Date: 20061208
  Serious: Yes (Death, Hospitalization)
  Sender: FDA-Public Use
  Company Number: 200610612BFR

PATIENT
  Age: 59 Year
  Sex: Male

DRUGS (9)
  1. SORAFENIB [Suspect]
     Indication: RENAL CELL CARCINOMA STAGE UNSPECIFIED
     Dosage: SEE IMAGE
     Route: 048
     Dates: start: 20060105, end: 20060206
  2. SORAFENIB [Suspect]
     Indication: RENAL CELL CARCINOMA STAGE UNSPECIFIED
     Dosage: SEE IMAGE
     Route: 048
     Dates: start: 20060206, end: 20060313
  3. GLUCOPHAGE [Concomitant]
  4. BISOPROLOL FUMARATE [Concomitant]
  5. DIANTALVIC [Concomitant]
  6. DURAGESIC-100 [Concomitant]
  7. PRIMPERAN TAB [Concomitant]
  8. DIAMICRON [Concomitant]
  9. MORPHINE SULFATE [Concomitant]

REACTIONS (2)
  - MALIGNANT NEOPLASM PROGRESSION [None]
  - METASTATIC RENAL CELL CARCINOMA [None]
